FAERS Safety Report 9053478 (Version 1)
Quarter: 2013Q1

REPORT INFORMATION
  Report Type: Spontaneous
  Country: GB (occurrence: GB)
  Receive Date: 20130208
  Receipt Date: 20130208
  Transmission Date: 20140127
  Serious: Yes (Hospitalization)
  Sender: FDA-Public Use
  Company Number: PHFR2013GB001057

PATIENT
  Age: 26 Year
  Sex: Female
  Weight: 40 kg

DRUGS (1)
  1. TEGRETOL [Suspect]

REACTIONS (3)
  - Status epilepticus [Unknown]
  - Drug level changed [Unknown]
  - Product substitution issue [Unknown]
